FAERS Safety Report 15230314 (Version 2)
Quarter: 2018Q3

REPORT INFORMATION
  Report Type: Spontaneous
  Country: US (occurrence: US)
  Receive Date: 20180802
  Receipt Date: 20180815
  Transmission Date: 20181010
  Serious: No
  Sender: FDA-Public Use
  Company Number: US-ASTRAZENECA-2018SE87154

PATIENT
  Age: 26931 Day
  Sex: Male
  Weight: 112 kg

DRUGS (1)
  1. BYDUREON BCISE [Suspect]
     Active Substance: EXENATIDE
     Indication: TYPE 2 DIABETES MELLITUS
     Route: 058
     Dates: start: 20180618

REACTIONS (5)
  - Device issue [Unknown]
  - Device malfunction [Unknown]
  - Asthenopia [Unknown]
  - Wrong technique in device usage process [Unknown]
  - Underdose [Unknown]

NARRATIVE: CASE EVENT DATE: 20180703
